FAERS Safety Report 5528578-5 (Version None)
Quarter: 2007Q4

REPORT INFORMATION
  Report Type: 
  Country: None (occurrence: None)
  Receive Date: 20071121
  Receipt Date: 20071107
  Transmission Date: 20080405
  Serious: Yes (Life-Threatening, Hospitalization)
  Sender: FDA-Public Use
  Company Number: A-JP2007-17448

PATIENT
  Age: 70 Year
  Sex: Female
  Weight: 51.2 kg

DRUGS (7)
  1. TRACLEER(BOSENTAN) TABLET62.5 MG [Suspect]
     Indication: PULMONARY HYPERTENSION
     Dosage: 125 MG, BID, ORAL; 62.5 MG, BID, ORAL; 62.5 MG, BID, ORAL
     Route: 048
     Dates: start: 20070122, end: 20070214
  2. TRACLEER(BOSENTAN) TABLET62.5 MG [Suspect]
     Indication: PULMONARY HYPERTENSION
     Dosage: 125 MG, BID, ORAL; 62.5 MG, BID, ORAL; 62.5 MG, BID, ORAL
     Route: 048
     Dates: start: 20070215, end: 20070221
  3. TRACLEER(BOSENTAN) TABLET62.5 MG [Suspect]
     Indication: PULMONARY HYPERTENSION
     Dosage: 125 MG, BID, ORAL; 62.5 MG, BID, ORAL; 62.5 MG, BID, ORAL
     Route: 048
     Dates: start: 20070222, end: 20070714
  4. WARFARIN POTASSIUM (WARFARIN POTASSIUM) [Concomitant]
  5. BERAPROST SODIUM (BERAPROST SODIUM) [Concomitant]
  6. FUROSEMIDE [Concomitant]
  7. OXYGEN (OXYGEN) [Concomitant]

REACTIONS (10)
  - ABDOMINAL DISTENSION [None]
  - ALANINE AMINOTRANSFERASE INCREASED [None]
  - ASPARTATE AMINOTRANSFERASE INCREASED [None]
  - BLOOD ALKALINE PHOSPHATASE INCREASED [None]
  - BLOOD BILIRUBIN INCREASED [None]
  - CONDITION AGGRAVATED [None]
  - DYSPNOEA [None]
  - GAMMA-GLUTAMYLTRANSFERASE INCREASED [None]
  - MULTI-ORGAN FAILURE [None]
  - RIGHT VENTRICULAR FAILURE [None]
